FAERS Safety Report 6409417-7 (Version None)
Quarter: 2009Q4

REPORT INFORMATION
  Report Type: 
  Country: None (occurrence: None)
  Receive Date: 20091019
  Receipt Date: 20091019
  Transmission Date: 20100525
  Serious: Yes (Other)
  Sender: FDA-Public Use
  Company Number: None

PATIENT
  Sex: Female
  Weight: 63.05 kg

DRUGS (1)
  1. VYVANSE [Suspect]
     Indication: DEPRESSION
     Dosage: 50MG PILL 1 TIME A DAY PO
     Route: 048
     Dates: start: 19890101

REACTIONS (10)
  - DEHYDRATION [None]
  - HEPATIC ENZYME INCREASED [None]
  - HYPOPHAGIA [None]
  - INSOMNIA [None]
  - LIP OEDEMA [None]
  - OEDEMA MOUTH [None]
  - PAIN [None]
  - STOMATITIS [None]
  - STRESS [None]
  - TONGUE BLISTERING [None]
